FAERS Safety Report 5410347-8 (Version None)
Quarter: 2007Q3

REPORT INFORMATION
  Report Type: 
  Country: None (occurrence: None)
  Receive Date: 20070808
  Receipt Date: 20070731
  Transmission Date: 20080115
  Serious: Yes (Hospitalization)
  Sender: FDA-Public Use
  Company Number: 2007BI016099

PATIENT
  Age: 48 Year
  Sex: Female

DRUGS (1)
  1. AVONEX [Suspect]
     Indication: MULTIPLE SCLEROSIS
     Dosage: 30 UG; QW; IM
     Route: 030
     Dates: start: 20060221

REACTIONS (9)
  - ANXIETY [None]
  - BACK PAIN [None]
  - DEPRESSION [None]
  - FATIGUE [None]
  - INSOMNIA [None]
  - NASAL CONGESTION [None]
  - NECK PAIN [None]
  - PANIC ATTACK [None]
  - SUICIDAL IDEATION [None]
